FAERS Safety Report 23965214 (Version 4)
Quarter: 2025Q3

REPORT INFORMATION
  Report Type: Report from Study
  Country: US (occurrence: US)
  Receive Date: 20240612
  Receipt Date: 20250901
  Transmission Date: 20251021
  Serious: No
  Sender: AMGEN
  Company Number: US-AMGEN-USASP2024114512

PATIENT
  Age: 53 Year
  Sex: Male

DRUGS (2)
  1. REPATHA [Suspect]
     Active Substance: EVOLOCUMAB
     Indication: Blood cholesterol abnormal
     Dosage: 420 MILLIGRAM, QMO
     Route: 065
  2. REPATHA [Suspect]
     Active Substance: EVOLOCUMAB
     Indication: Myocardial infarction
     Dosage: 140 MILLIGRAM, Q2WK
     Route: 065
     Dates: start: 202504

REACTIONS (7)
  - Injection site pain [Unknown]
  - Injection site bruising [Unknown]
  - Fear of injection [Unknown]
  - Presyncope [Unknown]
  - Device difficult to use [Unknown]
  - Drug dose omission by device [Unknown]
  - Product preparation error [Unknown]

NARRATIVE: CASE EVENT DATE: 20240610
